FAERS Safety Report 9562328 (Version 2)
Quarter: 2013Q3

REPORT INFORMATION
  Report Type: Spontaneous
  Country: SE (occurrence: SE)
  Receive Date: 20130927
  Receipt Date: 20130927
  Transmission Date: 20140515
  Serious: Yes (Other)
  Sender: FDA-Public Use
  Company Number: SE-ASTELLAS-2013EU007972

PATIENT
  Sex: Female

DRUGS (2)
  1. BETMIGA [Suspect]
     Indication: HYPERTONIC BLADDER
     Dosage: 50 MG, UNKNOWN/D
     Route: 048
     Dates: start: 20130630
  2. BETMIGA [Suspect]
     Dosage: 25 MG, UNKNOWN/D
     Route: 048
     Dates: start: 20130903

REACTIONS (2)
  - Renal colic [Unknown]
  - Gastritis [Unknown]
